FAERS Safety Report 15530223 (Version 1)
Quarter: 2018Q4

REPORT INFORMATION
  Report Type: Other
  Country: CA (occurrence: CA)
  Receive Date: 20181018
  Receipt Date: 20181018
  Transmission Date: 20190205
  Serious: Yes (Other)
  Sender: FDA-Public Use
  Company Number: CA-PFIZER INC-2018422652

PATIENT
  Age: 82 Year
  Sex: Female

DRUGS (1)
  1. HYDROMORPHONE HYDROCHLORIDE. [Suspect]
     Active Substance: HYDROMORPHONE HYDROCHLORIDE
     Indication: PAIN
     Dosage: UNK
     Route: 065

REACTIONS (1)
  - Delirium [Unknown]
